FAERS Safety Report 4358494-6 (Version None)
Quarter: 2004Q2

REPORT INFORMATION
  Report Type: 
  Country: None (occurrence: None)
  Receive Date: 20040511
  Receipt Date: 20040426
  Transmission Date: 20050107
  Serious: Yes (Other)
  Sender: FDA-Public Use
  Company Number: 2004028169

PATIENT
  Age: 67 Year
  Sex: Female

DRUGS (5)
  1. NORVASC [Suspect]
     Indication: HYPERTENSION
     Dosage: ORAL
     Route: 048
     Dates: start: 20030924, end: 20031201
  2. FAMOTIDINE [Suspect]
     Indication: GASTRIC ULCER
     Dosage: ORAL
     Route: 048
     Dates: start: 20030801, end: 20040224
  3. PREDNISOLONE [Concomitant]
  4. MECOBALAMIN (MECOBALAMIN) [Concomitant]
  5. ETIZOLAM (ETIZOLAM) [Concomitant]

REACTIONS (3)
  - HAEMOLYTIC ANAEMIA [None]
  - PLATELET COUNT DECREASED [None]
  - PROTEINURIA [None]
